FAERS Safety Report 16199991 (Version 2)
Quarter: 2019Q2

REPORT INFORMATION
  Report Type: Spontaneous
  Country: US (occurrence: US)
  Receive Date: 20190415
  Receipt Date: 20190418
  Transmission Date: 20190711
  Serious: Yes (Other)
  Sender: FDA-Public Use
  Company Number: US-AMGEN INC.-USASP2019057772

PATIENT
  Sex: Female

DRUGS (1)
  1. AIMOVIG [Suspect]
     Active Substance: ERENUMAB-AOOE
     Indication: PRODUCT USED FOR UNKNOWN INDICATION
     Dosage: 70 MILLIGRAM
     Route: 065
     Dates: start: 2018

REACTIONS (12)
  - Nausea [Unknown]
  - Influenza like illness [Unknown]
  - Arthralgia [Recovered/Resolved]
  - Adverse event [Unknown]
  - Asthenia [Unknown]
  - Deafness unilateral [Unknown]
  - Migraine [Recovered/Resolved]
  - Amnesia [Unknown]
  - Mood swings [Unknown]
  - Fatigue [Unknown]
  - Alopecia [Unknown]
  - Decreased appetite [Unknown]
